FAERS Safety Report 6485364-X (Version None)
Quarter: 2009Q4

REPORT INFORMATION
  Report Type: 
  Country: None (occurrence: None)
  Receive Date: 20091209
  Receipt Date: 20090623
  Transmission Date: 20100525
  Serious: No
  Sender: FDA-Public Use
  Company Number: US-AMGEN-KDL352870

PATIENT
  Sex: Female

DRUGS (5)
  1. ENBREL [Suspect]
     Indication: RHEUMATOID ARTHRITIS
     Route: 058
     Dates: start: 20030101
  2. ENBREL [Suspect]
     Indication: DRUG USE FOR UNKNOWN INDICATION
  3. ENBREL [Suspect]
     Indication: SJOGREN'S SYNDROME
  4. ENBREL [Suspect]
     Indication: OSTEOARTHRITIS
  5. METHOTREXATE [Concomitant]
     Route: 048

REACTIONS (7)
  - AMNESIA [None]
  - BLOOD GLUCOSE INCREASED [None]
  - BREAST CYST [None]
  - FATIGUE [None]
  - INJECTION SITE PAIN [None]
  - MEMORY IMPAIRMENT [None]
  - PRURITUS GENERALISED [None]
